FAERS Safety Report 7268931-5 (Version None)
Quarter: 2011Q1

REPORT INFORMATION
  Report Type: 
  Country: None (occurrence: None)
  Receive Date: 20110201
  Receipt Date: 20110124
  Transmission Date: 20110831
  Serious: Yes (Other)
  Sender: FDA-Public Use
  Company Number: US-MERCK-0806USA08537

PATIENT
  Age: 56 Year
  Sex: Female

DRUGS (3)
  1. FOSAMAX [Suspect]
     Route: 048
     Dates: start: 20020219, end: 20020702
  2. FOSAMAX [Suspect]
     Indication: OSTEOPOROSIS
     Route: 048
     Dates: start: 19980601, end: 20050907
  3. FOSAMAX [Suspect]
     Route: 048
     Dates: start: 20050401, end: 20051205

REACTIONS (37)
  - OSTEONECROSIS OF JAW [None]
  - FIBROUS DYSPLASIA OF BONE [None]
  - HYPERCEMENTOSIS [None]
  - LOOSE TOOTH [None]
  - ORAL DISORDER [None]
  - OSTEOMYELITIS [None]
  - OSTEONECROSIS [None]
  - BONE DENSITY DECREASED [None]
  - NEUTROPENIA [None]
  - PARAESTHESIA [None]
  - HYPERSENSITIVITY [None]
  - MASS [None]
  - CONTUSION [None]
  - FISTULA [None]
  - GINGIVAL INFECTION [None]
  - WHEEZING [None]
  - THALASSAEMIA BETA [None]
  - PAIN IN JAW [None]
  - ILL-DEFINED DISORDER [None]
  - INFLAMMATION [None]
  - BONE LESION [None]
  - CERVICAL POLYP [None]
  - DENTAL CARIES [None]
  - VISUAL IMPAIRMENT [None]
  - ROAD TRAFFIC ACCIDENT [None]
  - TOOTH HYPOPLASIA [None]
  - ECCHYMOSIS [None]
  - SWELLING [None]
  - BLOOD PRESSURE INCREASED [None]
  - MAMMOGRAM ABNORMAL [None]
  - SPINAL DISORDER [None]
  - PERIODONTITIS [None]
  - ANAEMIA [None]
  - EYELID INJURY [None]
  - VARICOSE VEIN [None]
  - SWOLLEN TONGUE [None]
  - GINGIVAL PAIN [None]
